FAERS Safety Report 7469540-5 (Version None)
Quarter: 2011Q2

REPORT INFORMATION
  Report Type: 
  Country: None (occurrence: None)
  Receive Date: 20110429
  Receipt Date: 20110413
  Transmission Date: 20111010
  Serious: Yes (Disabling, Other)
  Sender: FDA-Public Use
  Company Number: 1000019642

PATIENT
  Age: 84 Year
  Sex: Female
  Weight: 55 kg

DRUGS (7)
  1. EFFEXOR LP (VENLAFAXINE HYDROCHLORIDE) (37.5 MILLIGRAM) (VENLAFAXINE H [Concomitant]
  2. OXAZEPAM [Concomitant]
  3. LEKOVIT CA (CALCIUM CARBONATE. COLECALCIFEROL) (CALCIUM CARBONATE, COL [Concomitant]
  4. KARDEGIC (ACETYLSALICYLATE LYSINE) [Concomitant]
  5. MEMANTINE [Suspect]
     Indication: DEMENTIA ALZHEIMER'S TYPE
     Dosage: 10 MG (10 MG,1 IN1 D), ORAL
     Route: 048
     Dates: start: 20110215, end: 20110301
  6. SPECIAFOLDINE (FOLIC ACID) (FOLIC ACID) [Concomitant]
  7. ACETAMINOPHEN AND TRAMADOL HCL [Concomitant]

REACTIONS (9)
  - FALL [None]
  - COORDINATION ABNORMAL [None]
  - CONFUSIONAL STATE [None]
  - HYPOKALAEMIA [None]
  - IRRITABILITY [None]
  - MENTAL DISORDER [None]
  - ABNORMAL BEHAVIOUR [None]
  - HALLUCINATION [None]
  - GENERAL PHYSICAL HEALTH DETERIORATION [None]
